FAERS Safety Report 19750306 (Version 2)
Quarter: 2021Q4

REPORT INFORMATION
  Report Type: Spontaneous
  Country: JP (occurrence: JP)
  Receive Date: 20210826
  Receipt Date: 20211013
  Transmission Date: 20220303
  Serious: Yes (Other)
  Sender: FDA-Public Use
  Company Number: JP-OTSUKA-2021_029085

PATIENT
  Age: 95 Year
  Sex: Male

DRUGS (2)
  1. SAMSCA [Suspect]
     Active Substance: TOLVAPTAN
     Indication: Cardiac failure
     Dosage: 7.5 MG, QD
     Route: 048
  2. SAMSCA [Suspect]
     Active Substance: TOLVAPTAN
     Indication: Pleural effusion

REACTIONS (4)
  - Respiratory distress [Recovered/Resolved]
  - Pleural effusion [Recovered/Resolved]
  - Oedema [Recovered/Resolved]
  - Drug ineffective [Unknown]
